FAERS Safety Report 20327310 (Version 20)
Quarter: 2024Q1

REPORT INFORMATION
  Report Type: Spontaneous
  Country: IN (occurrence: IN)
  Receive Date: 20220112
  Receipt Date: 20240223
  Transmission Date: 20240409
  Serious: Yes (Hospitalization, Other)
  Sender: FDA-Public Use
  Company Number: IN-PFIZER INC-202101191851

PATIENT
  Age: 56 Year
  Sex: Female

DRUGS (7)
  1. PALBOCICLIB [Suspect]
     Active Substance: PALBOCICLIB
     Indication: Breast cancer recurrent
     Dosage: 125 MG, 1X/DAY
     Route: 048
     Dates: start: 20210105
  2. PALBOCICLIB [Suspect]
     Active Substance: PALBOCICLIB
     Dosage: 125 MG, 1X/DAY
     Route: 048
     Dates: start: 20210112
  3. PALBOCICLIB [Suspect]
     Active Substance: PALBOCICLIB
     Indication: Breast cancer recurrent
     Dosage: UNK
  4. LETERO [Concomitant]
     Dosage: 2.5 MG, 1X/DAY (EVERY MORNING)
  5. CALCIUM CARBONATE\CHOLECALCIFEROL [Concomitant]
     Active Substance: CALCIUM CARBONATE\CHOLECALCIFEROL
     Dosage: 500 MG, 2X/DAY (EVERY MORNING AND EVENING)
     Route: 048
  6. ZOLEDAC [Concomitant]
     Dosage: 4 MG IN 100 ML NORMAL SALINE OVER 15 MINS
  7. ALAMETH PN [Concomitant]
     Dosage: 1 DF, 1X/DAY
     Route: 048

REACTIONS (24)
  - Diffuse idiopathic skeletal hyperostosis [Unknown]
  - Arthralgia [Unknown]
  - Body mass index increased [Unknown]
  - Arthralgia [Unknown]
  - Catheter site pain [Unknown]
  - Blood pressure increased [Unknown]
  - Blood pressure decreased [Unknown]
  - Fatigue [Unknown]
  - Blood glucose increased [Unknown]
  - Eosinophil percentage increased [Unknown]
  - Mean cell haemoglobin increased [Unknown]
  - Respiratory rate increased [Unknown]
  - Body surface area increased [Unknown]
  - White blood cell count decreased [Unknown]
  - Lymphocyte count increased [Unknown]
  - Red cell distribution width increased [Unknown]
  - Hypoaesthesia [Recovering/Resolving]
  - Weight increased [Unknown]
  - Basophil percentage increased [Unknown]
  - Mean cell haemoglobin concentration increased [Unknown]
  - White blood cell count decreased [Unknown]
  - Globulins decreased [Unknown]
  - Blood test abnormal [Unknown]
  - Dyspepsia [Unknown]

NARRATIVE: CASE EVENT DATE: 20211229
